FAERS Safety Report 5038588-2 (Version None)
Quarter: 2006Q2

REPORT INFORMATION
  Report Type: 
  Country: None (occurrence: None)
  Receive Date: 20060628
  Receipt Date: 20060628
  Transmission Date: 20061013
  Serious: Yes (Hospitalization)
  Sender: FDA-Public Use
  Company Number: None

PATIENT
  Age: 24 Year
  Sex: Male
  Weight: 76.2 kg

DRUGS (1)
  1. ERYTHROMYCIN [Suspect]
     Indication: BRONCHITIS
     Dosage: TID PO
     Route: 048
     Dates: start: 20060601, end: 20060604

REACTIONS (1)
  - STEVENS-JOHNSON SYNDROME [None]
